FAERS Safety Report 10990474 (Version 1)
Quarter: 2015Q1

REPORT INFORMATION
  Report Type: Spontaneous
  Country: US (occurrence: None)
  Receive Date: 20150326
  Receipt Date: 20150326
  Transmission Date: 20150721
  Serious: No
  Sender: FDA-Public Use
  Company Number: 1000074090

PATIENT
  Age: 58 Year
  Sex: Female

DRUGS (1)
  1. LINZESS [Suspect]
     Active Substance: LINACLOTIDE
     Indication: CONSTIPATION
     Dosage: (145 MCG, 1 IN 2 D)
     Dates: start: 20150124

REACTIONS (3)
  - Intentional product misuse [None]
  - Diarrhoea [None]
  - Reduced bladder capacity [None]

NARRATIVE: CASE EVENT DATE: 20150124
